FAERS Safety Report 22605299 (Version 1)
Quarter: 2023Q2

REPORT INFORMATION
  Report Type: Spontaneous
  Country: US (occurrence: US)
  Receive Date: 20230615
  Receipt Date: 20230615
  Transmission Date: 20230722
  Serious: No
  Sender: FDA-Public Use
  Company Number: US-PFIZER INC-PV202300105301

PATIENT
  Age: 30 Year
  Sex: Female

DRUGS (1)
  1. NURTEC ODT [Suspect]
     Active Substance: RIMEGEPANT SULFATE
     Indication: Headache
     Dosage: 75 MG, AS NEEDED (TAKE 1 TABLET ON OR UNDER THE TONGUE EVERY ONCE A DAY AS NEEDED)
     Route: 048

REACTIONS (2)
  - Migraine [Unknown]
  - Off label use [Unknown]
